FAERS Safety Report 22187780 (Version 3)
Quarter: 2023Q2

REPORT INFORMATION
  Report Type: Report from Study
  Country: US (occurrence: US)
  Receive Date: 20230408
  Receipt Date: 20230415
  Transmission Date: 20230721
  Serious: Yes (Hospitalization, Other)
  Sender: FDA-Public Use
  Company Number: US-ABBVIE-22K-163-4471976-00

PATIENT
  Sex: Male

DRUGS (2)
  1. IMBRUVICA [Suspect]
     Active Substance: IBRUTINIB
     Indication: Chronic graft versus host disease
     Route: 048
     Dates: start: 202201, end: 20230214
  2. IMBRUVICA [Suspect]
     Active Substance: IBRUTINIB
     Indication: Chronic graft versus host disease
     Route: 048
     Dates: start: 20210601

REACTIONS (15)
  - Ulcer [Unknown]
  - Therapeutic product effect incomplete [Unknown]
  - Graft versus host disease oral [Unknown]
  - Dysphagia [Unknown]
  - Product use complaint [Unknown]
  - Oral disorder [Unknown]
  - Squamous cell carcinoma of skin [Unknown]
  - Fibrosis [Unknown]
  - Throat tightness [Unknown]
  - Sinusitis [Unknown]
  - Stomatitis [Unknown]
  - Scar [Unknown]
  - Oral submucosal fibrosis [Unknown]
  - Unevaluable event [Unknown]
  - Foreign body in throat [Unknown]

NARRATIVE: CASE EVENT DATE: 20220101
